FAERS Safety Report 7277131-4 (Version None)
Quarter: 2011Q1

REPORT INFORMATION
  Report Type: 
  Country: None (occurrence: None)
  Receive Date: 20110202
  Receipt Date: 20110202
  Transmission Date: 20110831
  Serious: Yes (Life-Threatening)
  Sender: FDA-Public Use
  Company Number: None

PATIENT
  Age: 58 Year
  Sex: Male
  Weight: 109.7705 kg

DRUGS (1)
  1. AVANDARYL [Suspect]
     Indication: TYPE 2 DIABETES MELLITUS
     Dosage: 1 TABLET PER DAY BY MOUTH
     Route: 048
     Dates: start: 20070730, end: 20070825

REACTIONS (1)
  - UNEVALUABLE EVENT [None]
